FAERS Safety Report 7914166-X (Version None)
Quarter: 2011Q4

REPORT INFORMATION
  Report Type: 
  Country: None (occurrence: None)
  Receive Date: 20111115
  Receipt Date: 20111115
  Transmission Date: 20120403
  Serious: Yes (Other)
  Sender: FDA-Public Use
  Company Number: None

PATIENT
  Age: 24 Year
  Sex: Male
  Weight: 83.914 kg

DRUGS (1)
  1. CYMBALTA [Suspect]
     Indication: DEPRESSION
     Dosage: 60MG
     Route: 048

REACTIONS (16)
  - HYPERHIDROSIS [None]
  - DRUG WITHDRAWAL SYNDROME [None]
  - MYALGIA [None]
  - HOT FLUSH [None]
  - TREMOR [None]
  - DEPENDENCE [None]
  - ANXIETY [None]
  - HEADACHE [None]
  - VERTIGO [None]
  - MENTAL DISORDER [None]
  - SUICIDAL IDEATION [None]
  - ARTHRALGIA [None]
  - VOMITING [None]
  - IMPAIRED WORK ABILITY [None]
  - EMOTIONAL POVERTY [None]
  - NAUSEA [None]
